FAERS Safety Report 11581997 (Version 1)
Quarter: 2015Q4

REPORT INFORMATION
  Report Type: Spontaneous
  Country: US (occurrence: US)
  Receive Date: 20151001
  Receipt Date: 20151001
  Transmission Date: 20160304
  Serious: No
  Sender: FDA-Public Use
  Company Number: US-ROCHE-679797

PATIENT
  Age: 44 Year
  Sex: Male

DRUGS (2)
  1. PEGASYS [Suspect]
     Active Substance: PEGINTERFERON ALFA-2A
     Indication: HEPATITIS C
     Dosage: FORM REPORTED AS PREFILLED SYRINGE
     Route: 058
     Dates: start: 20091015, end: 20100421
  2. RIBASPHERE RIBAPAK [Suspect]
     Active Substance: RIBAVIRIN
     Indication: HEPATITIS C
     Dosage: DIVIDED DOSES
     Route: 048
     Dates: start: 20091015, end: 20100421

REACTIONS (6)
  - Melaena [Not Recovered/Not Resolved]
  - Fatigue [Unknown]
  - Tooth abscess [Not Recovered/Not Resolved]
  - Dry skin [Unknown]
  - Rash [Unknown]
  - Affective disorder [Unknown]

NARRATIVE: CASE EVENT DATE: 20100401
